FAERS Safety Report 4610291-X (Version None)
Quarter: 2005Q1

REPORT INFORMATION
  Report Type: 
  Country: None (occurrence: None)
  Receive Date: 20050314
  Receipt Date: 20050302
  Transmission Date: 20050727
  Serious: Yes (Other)
  Sender: FDA-Public Use
  Company Number: 2005040143

PATIENT
  Age: 18 Year
  Sex: Male
  Weight: 61.2356 kg

DRUGS (3)
  1. NEURONTIN [Suspect]
     Indication: CONVULSION
     Dosage: 2400 MG (600 MG, 4 IN 1 D), ORAL
     Route: 048
  2. ATOMOXETINE HYDROCHLORIDE (ATOMOXETINE HYDROCHLORIDE) [Concomitant]
  3. METHYLPHENIDATE HCL [Concomitant]

REACTIONS (4)
  - HYPERPLASIA [None]
  - MOVEMENT DISORDER [None]
  - MUSCLE SPASMS [None]
  - MUSCULAR WEAKNESS [None]
